FAERS Safety Report 8957768 (Version 1)
Quarter: 2012Q4

REPORT INFORMATION
  Report Type: 
  Country: US (occurrence: US)
  Receive Date: 20121211
  Receipt Date: 20121211
  Transmission Date: 20130627
  Serious: No
  Sender: FDA-Public Use
  Company Number: US-BAYER-2012-111823

PATIENT
  Age: 31 Year
  Sex: Female

DRUGS (2)
  1. MIRENA [Suspect]
     Dosage: 20 mcg/24hr, CONT
     Route: 015
     Dates: start: 2008, end: 2012
  2. MIRENA [Suspect]
     Dosage: 20 mcg/24hr, CONT
     Route: 015
     Dates: start: 2010, end: 20121019

REACTIONS (10)
  - Labour pain [None]
  - Vomiting [None]
  - Vision blurred [None]
  - Device expulsion [None]
  - Dizziness [None]
  - Back pain [None]
  - Headache [None]
  - Weight increased [None]
  - Alopecia [None]
  - Blood pressure fluctuation [None]
